FAERS Safety Report 11323758 (Version 1)
Quarter: 2015Q3

REPORT INFORMATION
  Report Type: Spontaneous
  Country: US (occurrence: US)
  Receive Date: 20150730
  Receipt Date: 20150730
  Transmission Date: 20151125
  Serious: No
  Sender: FDA-Public Use
  Company Number: US-MYLANLABS-2014M1006369

PATIENT
  Sex: Female

DRUGS (2)
  1. TRAMADOL HYDROCHLORIDE TABLETS, USP [Suspect]
     Active Substance: TRAMADOL HYDROCHLORIDE
     Indication: RESTLESS LEGS SYNDROME
     Dosage: 50 MG, HS
     Route: 048
     Dates: start: 2011
  2. TRAMADOL HYDROCHLORIDE TABLETS, USP [Suspect]
     Active Substance: TRAMADOL HYDROCHLORIDE
     Indication: OFF LABEL USE

REACTIONS (3)
  - Drug ineffective for unapproved indication [Not Recovered/Not Resolved]
  - Insomnia [Not Recovered/Not Resolved]
  - Restless legs syndrome [Not Recovered/Not Resolved]

NARRATIVE: CASE EVENT DATE: 2014
